FAERS Safety Report 5968912-5 (Version None)
Quarter: 2008Q4

REPORT INFORMATION
  Report Type: 
  Country: None (occurrence: None)
  Receive Date: 20081126
  Receipt Date: 20081119
  Transmission Date: 20090506
  Serious: Yes (Hospitalization)
  Sender: FDA-Public Use
  Company Number: US-ELI_LILLY_AND_COMPANY-US200811005466

PATIENT
  Sex: Female
  Weight: 85.261 kg

DRUGS (8)
  1. BYETTA [Suspect]
     Indication: TYPE 2 DIABETES MELLITUS
     Dosage: 5 UG, 2/D
     Route: 058
     Dates: start: 20050801, end: 20080201
  2. TOPAMAX [Concomitant]
     Indication: CLUSTER HEADACHE
     Dosage: 100 MG, 2/D
     Route: 048
  3. ASPIRIN [Concomitant]
     Indication: CAROTID ARTERY OCCLUSION
     Dosage: 80 MG, DAILY (1/D)
     Route: 048
  4. AMARYL [Concomitant]
     Indication: TYPE 2 DIABETES MELLITUS
     Dosage: 1 MG, DAILY (1/D)
     Route: 048
  5. ALTACE [Concomitant]
     Indication: BLOOD PRESSURE INCREASED
     Dates: end: 20070101
  6. DIOVAN [Concomitant]
     Indication: BLOOD PRESSURE INCREASED
     Dosage: 80 MG, DAILY (1/D)
     Route: 048
     Dates: start: 20070101
  7. GABAPENTIN [Concomitant]
     Indication: CLUSTER HEADACHE
     Dosage: 1200 MG, 2/D
     Route: 048
  8. LANTUS [Concomitant]
     Indication: TYPE 2 DIABETES MELLITUS
     Dosage: 14 U, EACH EVENING
     Dates: start: 20080201

REACTIONS (4)
  - FEELING ABNORMAL [None]
  - FUNGAL INFECTION [None]
  - HEADACHE [None]
  - TACHYCARDIA [None]
